FAERS Safety Report 11634896 (Version 1)
Quarter: 2015Q4

REPORT INFORMATION
  Report Type: Spontaneous
  Country: US (occurrence: US)
  Receive Date: 20151015
  Receipt Date: 20151015
  Transmission Date: 20160304
  Serious: Yes (Hospitalization)
  Sender: FDA-Public Use
  Company Number: US-SA-2014SA155543

PATIENT
  Age: 79 Year
  Sex: Female
  Weight: 73 kg

DRUGS (11)
  1. ASPIRIN. [Concomitant]
     Active Substance: ASPIRIN
  2. LUMIGAN [Concomitant]
     Active Substance: BIMATOPROST
  3. FISH OIL [Concomitant]
     Active Substance: FISH OIL
  4. CHOLECALCIFEROL [Concomitant]
     Active Substance: CHOLECALCIFEROL
  5. CENTRUM SILVER [Concomitant]
     Active Substance: MINERALS\VITAMINS
  6. COREG [Concomitant]
     Active Substance: CARVEDILOL
  7. ZOCOR [Concomitant]
     Active Substance: SIMVASTATIN
  8. NASONEX [Concomitant]
     Active Substance: MOMETASONE FUROATE
  9. AVALIDE [Suspect]
     Active Substance: HYDROCHLOROTHIAZIDE\IRBESARTAN
     Dates: end: 20140903
  10. ANTINEOPLASTIC AGENTS [Suspect]
     Active Substance: UNSPECIFIED INGREDIENT
     Indication: CHRONIC LYMPHOCYTIC LEUKAEMIA
     Dates: start: 20140715, end: 20140903
  11. TIMOLOL. [Concomitant]
     Active Substance: TIMOLOL

REACTIONS (5)
  - Atrial fibrillation [Unknown]
  - Myocardial infarction [Unknown]
  - Dehydration [Unknown]
  - Cardiac failure congestive [Unknown]
  - Renal impairment [Recovered/Resolved]

NARRATIVE: CASE EVENT DATE: 20140903
